FAERS Safety Report 9205797 (Version 1)
Quarter: 2013Q1

REPORT INFORMATION
  Report Type: Spontaneous
  Country: US (occurrence: None)
  Receive Date: 20130329
  Receipt Date: 20130329
  Transmission Date: 20140127
  Serious: Yes (Life-Threatening)
  Sender: FDA-Public Use
  Company Number: 2013AP003860

PATIENT
  Age: 42 Year
  Sex: Male

DRUGS (3)
  1. QUETIAPINE FUMARATE [Suspect]
     Route: 048
  2. QUETIAPINE [Concomitant]
  3. FAMOTIDINE [Concomitant]

REACTIONS (3)
  - Electrocardiogram QT prolonged [None]
  - Cardiac arrest [None]
  - Torsade de pointes [None]
